FAERS Safety Report 6672000-2 (Version None)
Quarter: 2010Q2

REPORT INFORMATION
  Report Type: 
  Country: None (occurrence: None)
  Receive Date: 20100407
  Receipt Date: 20100331
  Transmission Date: 20101027
  Serious: Yes (Other)
  Sender: FDA-Public Use
  Company Number: US-MERCK-1002USA03613

PATIENT
  Age: 56 Year
  Sex: Female

DRUGS (2)
  1. FOSAMAX [Suspect]
     Indication: OSTEOPOROSIS
     Route: 048
     Dates: start: 19990101, end: 20060101
  2. ACTONEL [Suspect]
     Indication: OSTEOPOROSIS
     Route: 048
     Dates: start: 20060101, end: 20090101

REACTIONS (10)
  - ABSCESS [None]
  - FEMUR FRACTURE [None]
  - FISTULA DISCHARGE [None]
  - HYPOAESTHESIA FACIAL [None]
  - IMPAIRED HEALING [None]
  - JAW FRACTURE [None]
  - ORAL INFECTION [None]
  - OSTEOMYELITIS [None]
  - OSTEONECROSIS [None]
  - VASCULAR INSUFFICIENCY [None]
